FAERS Safety Report 4922335-6 (Version None)
Quarter: 2006Q1

REPORT INFORMATION
  Report Type: 
  Country: None (occurrence: None)
  Receive Date: 20060224
  Receipt Date: 20050722
  Transmission Date: 20060701
  Serious: Yes (Hospitalization)
  Sender: FDA-Public Use
  Company Number: US-MERCK-0507USA03836

PATIENT
  Age: 51 Year
  Sex: Male
  Weight: 95 kg

DRUGS (8)
  1. VIOXX [Suspect]
     Indication: RHEUMATOID ARTHRITIS
     Route: 065
     Dates: start: 19991201, end: 20041014
  2. EFFEXOR XR [Concomitant]
     Route: 065
  3. LEXAPRO [Concomitant]
     Route: 065
  4. PAXIL [Concomitant]
     Route: 065
  5. LORCET-HD [Concomitant]
     Route: 065
  6. DEMEROL [Concomitant]
     Route: 065
  7. FLEXERIL [Concomitant]
     Route: 065
  8. MEPERGAN FORTIS [Concomitant]
     Route: 065

REACTIONS (9)
  - ANXIETY [None]
  - BACK PAIN [None]
  - DEPRESSION [None]
  - DYSGEUSIA [None]
  - GROIN PAIN [None]
  - INJURY [None]
  - MYOCARDIAL INFARCTION [None]
  - OSTEOARTHRITIS [None]
  - TINNITUS [None]
